FAERS Safety Report 15391869 (Version 1)
Quarter: 2018Q4

REPORT INFORMATION
  Report Type: Spontaneous
  Country: US (occurrence: US)
  Receive Date: 20180917
  Receipt Date: 20180917
  Transmission Date: 20190204
  Serious: No
  Sender: FDA-Public Use
  Company Number: US-BAUSCH-BL-2017-030961

PATIENT
  Age: 25 Year
  Sex: Male
  Weight: 102.15 kg

DRUGS (3)
  1. TROPICAMIDE. [Suspect]
     Active Substance: TROPICAMIDE
     Indication: OPHTHALMOLOGICAL EXAMINATION
     Dosage: APPROXIMATELY 3 DROPS, SINGLE USE INTO BOTH EYES
     Route: 047
     Dates: start: 20171009, end: 20171009
  2. BILBERRY [Concomitant]
     Active Substance: BILBERRY
     Indication: PRODUCT USED FOR UNKNOWN INDICATION
     Route: 048
     Dates: start: 20171029
  3. PHENYLEPHRINE HYDROCHLORIDE OPHTHALMIC SOLUTION 10% [Suspect]
     Active Substance: PHENYLEPHRINE HYDROCHLORIDE
     Indication: OPHTHALMOLOGICAL EXAMINATION
     Dosage: APPROXIMATELY 3 DROPS, SINGLE USE INTO BOTH EYES
     Route: 047
     Dates: start: 20171009, end: 20171009

REACTIONS (4)
  - Diplopia [Not Recovered/Not Resolved]
  - Visual impairment [Not Recovered/Not Resolved]
  - Pupils unequal [Not Recovered/Not Resolved]
  - Eye pain [Not Recovered/Not Resolved]

NARRATIVE: CASE EVENT DATE: 2017
